FAERS Safety Report 24665357 (Version 1)
Quarter: 2024Q4

REPORT INFORMATION
  Report Type: Spontaneous
  Country: JP (occurrence: JP)
  Receive Date: 20241126
  Receipt Date: 20241126
  Transmission Date: 20250114
  Serious: Yes (Death)
  Sender: ROCHE
  Company Number: JP-ROCHE-10000136182

PATIENT

DRUGS (1)
  1. EMICIZUMAB [Suspect]
     Active Substance: EMICIZUMAB
     Indication: Acquired haemophilia
     Route: 065

REACTIONS (1)
  - Asthenia [Fatal]
